FAERS Safety Report 6100842-0 (Version None)
Quarter: 2009Q1

REPORT INFORMATION
  Report Type: 
  Country: None (occurrence: None)
  Receive Date: 20090304
  Receipt Date: 20090218
  Transmission Date: 20090719
  Serious: Yes (Other)
  Sender: FDA-Public Use
  Company Number: IL-RANBAXY-2009RR-21907

PATIENT
  Age: 59 Year
  Sex: Male

DRUGS (4)
  1. ASPIRIN [Suspect]
  2. ATENOLOL [Suspect]
  3. RESPRIM [Suspect]
  4. CEFUROXIME [Suspect]

REACTIONS (1)
  - VASCULITIS [None]
